FAERS Safety Report 24679689 (Version 1)
Quarter: 2024Q4

REPORT INFORMATION
  Report Type: Report from Study
  Country: CA (occurrence: CA)
  Receive Date: 20241129
  Receipt Date: 20241129
  Transmission Date: 20250115
  Serious: Yes (Disabling, Other)
  Sender: CELLTRION
  Company Number: CA-CELLTRION INC.-2022CA019621

PATIENT

DRUGS (19)
  1. RITUXIMAB-ABBS [Suspect]
     Active Substance: RITUXIMAB-ABBS
     Indication: Rheumatoid arthritis
     Dosage: 1000 MG, DAY 1 AND 15
     Route: 042
     Dates: start: 20200630
  2. RITUXIMAB-ABBS [Suspect]
     Active Substance: RITUXIMAB-ABBS
     Dosage: 1000 MG, Q2WEEKS
     Route: 042
     Dates: start: 20200630
  3. RITUXIMAB-ABBS [Suspect]
     Active Substance: RITUXIMAB-ABBS
     Dosage: 1000 MG X 2 VIALS
     Route: 042
     Dates: start: 20200630, end: 20220322
  4. RITUXIMAB-ABBS [Suspect]
     Active Substance: RITUXIMAB-ABBS
     Dosage: 1000 MG, INFUSION#7
     Route: 042
     Dates: start: 20200630
  5. RITUXIMAB-ABBS [Suspect]
     Active Substance: RITUXIMAB-ABBS
     Dosage: 1000 MG, INFUSION#10
     Route: 042
     Dates: start: 20200630
  6. RITUXIMAB-ABBS [Suspect]
     Active Substance: RITUXIMAB-ABBS
     Dosage: 1000 MG, INFUSION#12
     Route: 042
     Dates: start: 20200630
  7. RITUXIMAB-ABBS [Suspect]
     Active Substance: RITUXIMAB-ABBS
     Dosage: 1000 MG, INFUSION#13
     Route: 042
     Dates: start: 20200630
  8. XARELTO [Concomitant]
     Active Substance: RIVAROXABAN
  9. GABAPENTIN [Concomitant]
     Active Substance: GABAPENTIN
  10. LYRICA [Concomitant]
     Active Substance: PREGABALIN
  11. BACLOFEN [Concomitant]
     Active Substance: BACLOFEN
  12. BISOPROLOL [Concomitant]
     Active Substance: BISOPROLOL
     Dosage: 2.5 MILLIGRAM THIS MORNING
  13. CRESTOR [Concomitant]
     Active Substance: ROSUVASTATIN CALCIUM
  14. AMITRIPTYLINE [Concomitant]
     Active Substance: AMITRIPTYLINE
  15. PREDNISONE [Concomitant]
     Active Substance: PREDNISONE
  16. TYLENOL [Concomitant]
     Active Substance: ACETAMINOPHEN
     Indication: Premedication
     Dosage: 650 MG
     Route: 048
  17. BENADRYL [Concomitant]
     Active Substance: DIPHENHYDRAMINE HYDROCHLORIDE
     Indication: Premedication
     Dosage: 50 MG
     Route: 048
  18. SOLU-MEDROL [Concomitant]
     Active Substance: METHYLPREDNISOLONE SODIUM SUCCINATE
     Indication: Premedication
     Dosage: 100 MG
     Route: 042
  19. METHYLPREDNISOLONE [Concomitant]
     Active Substance: METHYLPREDNISOLONE
     Indication: Premedication
     Dosage: 100 MG

REACTIONS (14)
  - Hip surgery [Unknown]
  - Fall [Unknown]
  - Rheumatoid arthritis [Not Recovered/Not Resolved]
  - Spinal rod adjustment [Unknown]
  - Mobility decreased [Unknown]
  - Walking aid user [Unknown]
  - Incision site haemorrhage [Unknown]
  - Incision site discomfort [Not Recovered/Not Resolved]
  - Tooth infection [Unknown]
  - Postoperative wound infection [Recovered/Resolved]
  - Blood pressure abnormal [Unknown]
  - Therapy cessation [Unknown]
  - Off label use [Unknown]
  - Product prescribing issue [Unknown]

NARRATIVE: CASE EVENT DATE: 20210816
